FAERS Safety Report 19605373 (Version 2)
Quarter: 2022Q1

REPORT INFORMATION
  Report Type: Spontaneous
  Country: US (occurrence: US)
  Receive Date: 20210723
  Receipt Date: 20220308
  Transmission Date: 20220423
  Serious: No
  Sender: FDA-Public Use
  Company Number: US-PFIZER INC-2021557570

PATIENT
  Age: 73 Year
  Sex: Female

DRUGS (2)
  1. XELJANZ XR [Suspect]
     Active Substance: TOFACITINIB CITRATE
     Indication: Rheumatoid arthritis
     Dosage: 11 MG, 1X/DAY
     Route: 048
     Dates: start: 20210416
  2. XELJANZ XR [Suspect]
     Active Substance: TOFACITINIB CITRATE
     Dosage: 11 MG, 1X/DAY
     Route: 048
     Dates: start: 20210416, end: 202112

REACTIONS (12)
  - Drug ineffective [Unknown]
  - Arthralgia [Unknown]
  - Back pain [Unknown]
  - Poor quality sleep [Unknown]
  - Depression [Unknown]
  - Loss of personal independence in daily activities [Unknown]
  - Ageusia [Unknown]
  - Decreased appetite [Unknown]
  - Sleep disorder [Unknown]
  - Gastrooesophageal reflux disease [Unknown]
  - Pain [Unknown]
  - Musculoskeletal stiffness [Unknown]
